FAERS Safety Report 24121007 (Version 2)
Quarter: 2024Q3

REPORT INFORMATION
  Report Type: Spontaneous
  Country: US (occurrence: US)
  Receive Date: 20240722
  Receipt Date: 20240726
  Transmission Date: 20241016
  Serious: Yes (Hospitalization)
  Sender: PFIZER
  Company Number: US-PFIZER INC-202400218883

PATIENT
  Age: 30 Year
  Sex: Female

DRUGS (1)
  1. OXBRYTA [Suspect]
     Active Substance: VOXELOTOR
     Dosage: 500MG TABS TAKE 3 TABLETS BY MOUTH ONCE DAILY
     Route: 048
     Dates: start: 2019

REACTIONS (1)
  - Sickle cell anaemia with crisis [Unknown]
